FAERS Safety Report 9187204 (Version 2)
Quarter: 2013Q2

REPORT INFORMATION
  Report Type: Spontaneous
  Country: JP (occurrence: JP)
  Receive Date: 20130325
  Receipt Date: 20130410
  Transmission Date: 20140414
  Serious: Yes (Death)
  Sender: FDA-Public Use
  Company Number: JP-B.I. PHARMACEUTICALS,INC./RIDGEFIELD-2013-BI-07575NB

PATIENT
  Age: 89 Year
  Sex: Male

DRUGS (2)
  1. PRAZAXA [Suspect]
     Dosage: 220 MG
     Route: 048
  2. RENIVACE [Concomitant]
     Route: 065

REACTIONS (1)
  - Cerebral infarction [Fatal]
